FAERS Safety Report 7248713-0 (Version None)
Quarter: 2011Q1

REPORT INFORMATION
  Report Type: 
  Country: None (occurrence: None)
  Receive Date: 20110121
  Receipt Date: 20110121
  Transmission Date: 20110831
  Serious: Yes (Other)
  Sender: FDA-Public Use
  Company Number: None

PATIENT
  Sex: Female

DRUGS (2)
  1. DEPAKOTE ER [Suspect]
     Indication: MOOD SWINGS
     Dosage: 750MG HS ORAL
     Route: 048
     Dates: start: 20101210, end: 20101216
  2. DEPAKOTE [Suspect]

REACTIONS (3)
  - MEDICATION ERROR [None]
  - DRUG DISPENSING ERROR [None]
  - PRODUCT LABEL ISSUE [None]
